FAERS Safety Report 9999545 (Version 2)
Quarter: 2015Q1

REPORT INFORMATION
  Report Type: Spontaneous
  Country: DK (occurrence: DE)
  Receive Date: 20140312
  Receipt Date: 20150128
  Transmission Date: 20150721
  Serious: Yes (Congenital Anomaly, Other)
  Sender: FDA-Public Use
  Company Number: DE-FRI-1000060508

PATIENT
  Age: 0 Year
  Sex: Male
  Weight: 2.22 kg

DRUGS (1)
  1. CITALOPRAM [Suspect]
     Active Substance: CITALOPRAM HYDROBROMIDE
     Indication: PANIC DISORDER
     Dosage: 40 MG
     Route: 064
     Dates: start: 20111002, end: 20120629

REACTIONS (9)
  - Foetal heart rate deceleration abnormality [Unknown]
  - Micropenis [Not Recovered/Not Resolved]
  - Low birth weight baby [Unknown]
  - Hypospadias [Not Recovered/Not Resolved]
  - Foetal exposure during pregnancy [Not Recovered/Not Resolved]
  - Reproductive tract hypoplasia, male [Unknown]
  - Apgar score low [Recovered/Resolved]
  - Small for dates baby [Recovered/Resolved]
  - Cryptorchism [Recovering/Resolving]

NARRATIVE: CASE EVENT DATE: 20111002
